FAERS Safety Report 7792028-9 (Version None)
Quarter: 2011Q4

REPORT INFORMATION
  Report Type: 
  Country: None (occurrence: None)
  Receive Date: 20111003
  Receipt Date: 20110926
  Transmission Date: 20120403
  Serious: Yes (Death, Life-Threatening)
  Sender: FDA-Public Use
  Company Number: GB-CELGENEUS-167-C5013-11021731

PATIENT
  Sex: Male
  Weight: 82 kg

DRUGS (21)
  1. ADCAL [Concomitant]
     Indication: PROPHYLAXIS
     Dosage: 1 TABLET
     Route: 048
     Dates: start: 20081203
  2. MELPHALAN HYDROCHLORIDE [Suspect]
     Route: 065
     Dates: start: 20090916, end: 20091111
  3. ZOLEDRONIC [Concomitant]
     Dosage: .1333 MILLIGRAM
     Route: 041
     Dates: start: 20081203
  4. PREDNISONE [Suspect]
     Indication: MULTIPLE MYELOMA
     Dosage: 175 MILLIGRAM
     Route: 065
     Dates: start: 20090204, end: 20090916
  5. ACETAMINOPHEN AND CODEINE PHOSPHATE [Concomitant]
     Indication: PAIN
     Route: 048
  6. OMEPRAZOLE [Concomitant]
     Indication: GASTRITIS PROPHYLAXIS
     Dosage: 40 MILLIGRAM
     Route: 048
     Dates: start: 20090204
  7. SENNA [Concomitant]
     Indication: CONSTIPATION
     Dosage: 2 TABLET
     Route: 048
     Dates: start: 20090303
  8. HYDROXOCOBALAMIN [Concomitant]
     Indication: VITAMIN B12 DEFICIENCY
     Route: 058
     Dates: start: 20080819
  9. ALBUTEROL [Concomitant]
     Indication: PROPHYLAXIS
     Dosage: .0833 MILLIGRAM
     Route: 055
     Dates: start: 20090318
  10. MAGNESIUM HYDROXIDE [Concomitant]
     Indication: CONSTIPATION
     Route: 048
     Dates: start: 20090408
  11. THALIDOMIDE [Suspect]
     Indication: MULTIPLE MYELOMA
     Dosage: 100 MILLIGRAM
     Route: 048
     Dates: start: 20090204, end: 20090916
  12. VELCADE [Concomitant]
     Indication: MULTIPLE MYELOMA
     Route: 065
     Dates: start: 20100908, end: 20101124
  13. DEXAMETHASONE [Concomitant]
     Indication: MULTIPLE MYELOMA
     Route: 065
     Dates: start: 20100908, end: 20101124
  14. NEUPOGEN [Concomitant]
     Indication: NEUTROPENIA
     Dosage: 75.1429 MICROGRAM
     Route: 048
     Dates: start: 20090930
  15. MELPHALAN HYDROCHLORIDE [Suspect]
     Indication: MULTIPLE MYELOMA
     Dosage: 18 MILLIGRAM
     Route: 065
     Dates: start: 20090204, end: 20090916
  16. PREDNISOLONE [Concomitant]
     Indication: MULTIPLE MYELOMA
     Route: 065
     Dates: start: 20090916, end: 20091111
  17. ENOXAPARIN SODIUM [Concomitant]
     Indication: THROMBOSIS PROPHYLAXIS
     Dosage: 40 MILLIGRAM
     Route: 058
     Dates: start: 20090204
  18. DOMPERIDONE [Concomitant]
     Indication: PROPHYLAXIS
     Dosage: 10 MILLIGRAM
     Route: 048
     Dates: start: 20090204
  19. PENTAMADINE [Concomitant]
     Indication: PROPHYLAXIS
     Dosage: 10 MILLIGRAM
     Route: 055
     Dates: start: 20090318
  20. MOVIPREP [Concomitant]
     Indication: CONSTIPATION
     Route: 048
     Dates: start: 20090408
  21. IBRUGEL [Concomitant]
     Indication: ARTHRITIS
     Route: 061
     Dates: start: 20090804

REACTIONS (1)
  - ACUTE MYELOID LEUKAEMIA [None]
